FAERS Safety Report 13870815 (Version 1)
Quarter: 2017Q3

REPORT INFORMATION
  Report Type: Spontaneous
  Country: CA (occurrence: CA)
  Receive Date: 20170816
  Receipt Date: 20170816
  Transmission Date: 20171127
  Serious: Yes (Other)
  Sender: FDA-Public Use
  Company Number: PHHY2017CA117752

PATIENT
  Age: 22 Year
  Sex: Female

DRUGS (2)
  1. LEFLUNOMIDE. [Suspect]
     Active Substance: LEFLUNOMIDE
     Indication: SPONDYLOARTHROPATHY
     Dosage: 20 MG, QD
     Route: 048
  2. NAPROXEN. [Concomitant]
     Active Substance: NAPROXEN
     Indication: SPONDYLOARTHROPATHY
     Route: 065

REACTIONS (9)
  - Vomiting [Recovering/Resolving]
  - Eosinophilia [Recovering/Resolving]
  - Eczema [Recovering/Resolving]
  - Abdominal pain [Recovering/Resolving]
  - Nausea [Recovering/Resolving]
  - Rash macular [Recovering/Resolving]
  - Rash erythematous [Recovering/Resolving]
  - Leukocytosis [Recovering/Resolving]
  - Drug reaction with eosinophilia and systemic symptoms [Recovering/Resolving]
